FAERS Safety Report 16842552 (Version 2)
Quarter: 2019Q4

REPORT INFORMATION
  Report Type: Report from Study
  Country: None (occurrence: AE)
  Receive Date: 20190924
  Receipt Date: 20191010
  Transmission Date: 20200122
  Serious: Yes (Life-Threatening, Hospitalization)
  Sender: FDA-Public Use
  Company Number: AE-ABBVIE-19K-166-2930352-00

PATIENT
  Age: 77 Year
  Sex: Female
  Weight: 72 kg

DRUGS (6)
  1. SINEMET [Concomitant]
     Active Substance: CARBIDOPA\LEVODOPA
     Indication: PARKINSON^S DISEASE
     Dosage: 50/200 MG
     Route: 048
  2. DUODOPA [Suspect]
     Active Substance: CARBIDOPA\LEVODOPA
     Indication: PARKINSON^S DISEASE
     Dosage: DUODOPA CONTINUOUS DOSE 2.7 ML/ 16 HOURS, AM DOSE 11 ML AND EXTRA DOSE OF 2 ML
     Route: 050
     Dates: start: 20190416
  3. TRAZODONE [Concomitant]
     Active Substance: TRAZODONE HYDROCHLORIDE
     Indication: AFFECTIVE DISORDER
     Route: 048
  4. ARICEPT [Concomitant]
     Active Substance: DONEPEZIL HYDROCHLORIDE
     Indication: PSYCHOTHERAPY
     Route: 048
  5. FOLICUM [Concomitant]
     Indication: VITAMIN SUPPLEMENTATION
     Route: 048
  6. CIPRALEX [Concomitant]
     Active Substance: ESCITALOPRAM OXALATE
     Indication: ANTIDEPRESSANT THERAPY
     Route: 048

REACTIONS (7)
  - Hospitalisation [Recovered/Resolved]
  - Expired product administered [Unknown]
  - Restlessness [Unknown]
  - Sleep disorder [Recovered/Resolved with Sequelae]
  - Dystonia [Unknown]
  - Musculoskeletal stiffness [Recovered/Resolved with Sequelae]
  - Tremor [Recovered/Resolved with Sequelae]

NARRATIVE: CASE EVENT DATE: 2019
